FAERS Safety Report 23841817 (Version 5)
Quarter: 2024Q3

REPORT INFORMATION
  Report Type: Report from Study
  Country: US (occurrence: US)
  Receive Date: 20240510
  Receipt Date: 20240822
  Transmission Date: 20241017
  Serious: Yes (Hospitalization)
  Sender: INSMED
  Company Number: US-INSMED, INC.-2022-00392-US

PATIENT
  Sex: Male

DRUGS (3)
  1. ARIKAYCE [Suspect]
     Active Substance: AMIKACIN
     Indication: Product used for unknown indication
     Dosage: 590 MILLIGRAM, QD
     Route: 055
     Dates: start: 20190415, end: 2019
  2. ARIKAYCE [Suspect]
     Active Substance: AMIKACIN
     Dosage: 590 MILLIGRAM, QD
     Route: 055
     Dates: start: 20220210
  3. ARIKAYCE [Suspect]
     Active Substance: AMIKACIN
     Dosage: 590 MILLIGRAM, QD
     Route: 055
     Dates: start: 202405, end: 2024

REACTIONS (10)
  - Hospitalisation [Unknown]
  - Hospitalisation [Unknown]
  - Leukoplakia oral [Unknown]
  - Memory impairment [Unknown]
  - Upper respiratory tract infection [Unknown]
  - Headache [Not Recovered/Not Resolved]
  - Tinnitus [Not Recovered/Not Resolved]
  - Product dose omission issue [Unknown]
  - Intentional dose omission [Unknown]
  - Therapy interrupted [Unknown]

NARRATIVE: CASE EVENT DATE: 20190101
